FAERS Safety Report 14269032 (Version 8)
Quarter: 2019Q1

REPORT INFORMATION
  Report Type: Spontaneous
  Country: DE (occurrence: DE)
  Receive Date: 20171211
  Receipt Date: 20190227
  Transmission Date: 20190417
  Serious: Yes (Hospitalization, Other)
  Sender: FDA-Public Use
  Company Number: DE-OTSUKA-2017_025889

PATIENT
  Age: 55 Year
  Sex: Female

DRUGS (34)
  1. QUETIAPINE FUMARATE. [Suspect]
     Active Substance: QUETIAPINE FUMARATE
     Dosage: 700 MG, QD (700 MG,1 IN 1 D)
     Route: 048
     Dates: start: 20170731
  2. QUETIAPINE FUMARATE. [Suspect]
     Active Substance: QUETIAPINE FUMARATE
     Dosage: 800 MG, QD
     Route: 048
     Dates: start: 20170809, end: 20170830
  3. QUETIAPINE FUMARATE. [Suspect]
     Active Substance: QUETIAPINE FUMARATE
     Dosage: 600 MG, QD
     Route: 048
     Dates: end: 20170730
  4. LORAZEPAM. [Concomitant]
     Active Substance: LORAZEPAM
     Dosage: 2 MG, QD
     Route: 048
     Dates: start: 20170812, end: 20170814
  5. LORAZEPAM. [Concomitant]
     Active Substance: LORAZEPAM
     Dosage: 0.5 MG, QD
     Route: 048
     Dates: start: 20170817, end: 20170817
  6. LORAZEPAM. [Concomitant]
     Active Substance: LORAZEPAM
     Dosage: 1.5 MG, QD
     Route: 048
     Dates: start: 20170812, end: 20170814
  7. AMISULPRIDE [Concomitant]
     Active Substance: AMISULPRIDE
     Indication: PRODUCT USED FOR UNKNOWN INDICATION
     Dosage: 400 MG, UNK
     Route: 065
     Dates: start: 20170806
  8. AMISULPRIDE [Concomitant]
     Active Substance: AMISULPRIDE
     Dosage: 900 MG, UNK
     Route: 065
  9. ARIPIPRAZOLE. [Suspect]
     Active Substance: ARIPIPRAZOLE
     Indication: SCHIZOPHRENIA
     Dosage: 30 MG, QD
     Route: 048
     Dates: start: 20161001, end: 20170801
  10. QUETIAPINE FUMARATE. [Suspect]
     Active Substance: QUETIAPINE FUMARATE
     Indication: SCHIZOPHRENIA
     Dosage: 800 MG, QD
     Route: 048
     Dates: start: 20170801, end: 20170803
  11. LORAZEPAM. [Concomitant]
     Active Substance: LORAZEPAM
     Dosage: 1.5 MG, QD
     Route: 048
     Dates: start: 20170803, end: 20170809
  12. AMISULPRIDE [Concomitant]
     Active Substance: AMISULPRIDE
     Dosage: 500 MG, UNK
     Route: 065
     Dates: start: 20170808
  13. AMISULPRIDE [Concomitant]
     Active Substance: AMISULPRIDE
     Dosage: 400 MG, UNK
     Route: 065
  14. AMISULPRIDE [Concomitant]
     Active Substance: AMISULPRIDE
     Dosage: 800 MG, UNK
     Route: 065
     Dates: start: 20170824
  15. AMISULPRIDE [Concomitant]
     Active Substance: AMISULPRIDE
     Dosage: 500 MG, UNK
     Route: 065
  16. AMISULPRIDE [Concomitant]
     Active Substance: AMISULPRIDE
     Dosage: 600 MG, UNK
     Route: 065
  17. LORAZEPAM. [Concomitant]
     Active Substance: LORAZEPAM
     Indication: PRODUCT USED FOR UNKNOWN INDICATION
     Dosage: 2 MG, QD
     Route: 048
     Dates: start: 20170801, end: 20170802
  18. LORAZEPAM. [Concomitant]
     Active Substance: LORAZEPAM
     Dosage: 2 MG, QD
     Route: 048
     Dates: start: 20170731
  19. LORAZEPAM. [Concomitant]
     Active Substance: LORAZEPAM
     Dosage: 1.5 MG, QD
     Route: 048
     Dates: start: 20170731
  20. AMISULPRIDE [Concomitant]
     Active Substance: AMISULPRIDE
     Dosage: 600 MG, UNK
     Route: 065
     Dates: start: 20170809
  21. AMISULPRIDE [Concomitant]
     Active Substance: AMISULPRIDE
     Dosage: 600 MG, UNK
     Route: 065
     Dates: start: 20170822
  22. AMISULPRIDE [Concomitant]
     Active Substance: AMISULPRIDE
     Dosage: 800 MG, UNK
     Route: 065
  23. QUETIAPINE FUMARATE. [Suspect]
     Active Substance: QUETIAPINE FUMARATE
     Dosage: 600 MG, QD
     Route: 048
     Dates: start: 20170830
  24. ARIPIPRAZOLE. [Suspect]
     Active Substance: ARIPIPRAZOLE
     Dosage: 25 MG, QD (1 IN 1 D)
     Route: 048
     Dates: start: 20170805
  25. ARIPIPRAZOLE. [Suspect]
     Active Substance: ARIPIPRAZOLE
     Dosage: 10 MG, QD
     Route: 048
     Dates: start: 20170806, end: 20170807
  26. QUETIAPINE FUMARATE. [Suspect]
     Active Substance: QUETIAPINE FUMARATE
     Dosage: 600 MG, QD
     Route: 048
     Dates: start: 20170830, end: 20170830
  27. LORAZEPAM. [Concomitant]
     Active Substance: LORAZEPAM
     Dosage: 2 MG, QD
     Route: 048
     Dates: start: 20170810, end: 20170811
  28. AMISULPRIDE [Concomitant]
     Active Substance: AMISULPRIDE
     Dosage: 500 MG, UNK
     Route: 065
     Dates: start: 20170809
  29. QUETIAPINE FUMARATE. [Suspect]
     Active Substance: QUETIAPINE FUMARATE
     Dosage: 900 MG, QD
     Route: 048
     Dates: start: 20170804, end: 20170808
  30. AMISULPRIDE [Concomitant]
     Active Substance: AMISULPRIDE
     Dosage: 900 MG, UNK
     Route: 065
     Dates: start: 20170901
  31. LORAZEPAM. [Concomitant]
     Active Substance: LORAZEPAM
     Dosage: 2 MG, QD
     Route: 048
     Dates: start: 20170803, end: 20170809
  32. LORAZEPAM. [Concomitant]
     Active Substance: LORAZEPAM
     Dosage: 1 MG, QD
     Route: 048
     Dates: start: 20170815, end: 20170816
  33. LORAZEPAM. [Concomitant]
     Active Substance: LORAZEPAM
     Dosage: 1 MG, QD
     Route: 048
     Dates: start: 20170817, end: 20170817
  34. AMISULPRIDE [Concomitant]
     Active Substance: AMISULPRIDE
     Dosage: 800 MG, UNK
     Route: 065
     Dates: start: 20170806

REACTIONS (5)
  - Alopecia [Not Recovered/Not Resolved]
  - Macrocytosis [Recovered/Resolved]
  - Vitamin B12 decreased [Unknown]
  - Blood folate decreased [Unknown]
  - Fatigue [Not Recovered/Not Resolved]

NARRATIVE: CASE EVENT DATE: 20170802
